FAERS Safety Report 7511742-3 (Version None)
Quarter: 2011Q2

REPORT INFORMATION
  Report Type: 
  Country: None (occurrence: None)
  Receive Date: 20110531
  Receipt Date: 20110517
  Transmission Date: 20111010
  Serious: Yes (Hospitalization)
  Sender: FDA-Public Use
  Company Number: JP-ELI_LILLY_AND_COMPANY-JP201105005326

PATIENT
  Sex: Male

DRUGS (2)
  1. FORTEO [Suspect]
     Dosage: UNK
     Route: 058
     Dates: start: 20110201, end: 20110301
  2. FORTEO [Suspect]
     Dosage: UNK
     Route: 058
     Dates: end: 20110501

REACTIONS (2)
  - RESPIRATORY DISORDER [None]
  - DYSPNOEA [None]
